FAERS Safety Report 7201182-9 (Version None)
Quarter: 2010Q4

REPORT INFORMATION
  Report Type: 
  Country: None (occurrence: None)
  Receive Date: 20101229
  Receipt Date: 20101221
  Transmission Date: 20110411
  Serious: Yes (Death, Other)
  Sender: FDA-Public Use
  Company Number: GR-CELGENEUS-066-20785-10122834

PATIENT
  Age: 67 Year
  Sex: Male

DRUGS (1)
  1. THALIDOMIDE [Suspect]
     Indication: MULTIPLE MYELOMA
     Route: 048

REACTIONS (6)
  - BONE MARROW FAILURE [None]
  - LEUKAEMIA PLASMACYTIC [None]
  - MULTIPLE MYELOMA [None]
  - NO THERAPEUTIC RESPONSE [None]
  - PULMONARY HAEMORRHAGE [None]
  - THROMBOCYTOPENIA [None]
